FAERS Safety Report 8025320-3 (Version None)
Quarter: 2011Q4

REPORT INFORMATION
  Report Type: 
  Country: None (occurrence: None)
  Receive Date: 20111130
  Receipt Date: 20110224
  Transmission Date: 20120403
  Serious: Yes (Other)
  Sender: FDA-Public Use
  Company Number: 323967

PATIENT
  Age: 31 Year
  Sex: Male
  Weight: 90.7 kg

DRUGS (3)
  1. LANTUS [Concomitant]
  2. NOVOLOG [Suspect]
     Indication: TYPE 1 DIABETES MELLITUS
     Dosage: SLIDING SCALE, SUBCUTANEOUS ; 251 IU, QD, SUBCUTANEOUS
     Route: 058
     Dates: start: 20110222, end: 20110223
  3. NOVOLOG [Suspect]
     Indication: TYPE 1 DIABETES MELLITUS
     Dosage: SLIDING SCALE, SUBCUTANEOUS ; 251 IU, QD, SUBCUTANEOUS
     Route: 058
     Dates: start: 20090101, end: 20110222

REACTIONS (1)
  - BLOOD GLUCOSE INCREASED [None]
